FAERS Safety Report 10086673 (Version 1)
Quarter: 2014Q2

REPORT INFORMATION
  Report Type: Spontaneous
  Country: US (occurrence: None)
  Receive Date: 20140417
  Receipt Date: 20140417
  Transmission Date: 20141212
  Serious: No
  Sender: FDA-Public Use
  Company Number: None

PATIENT
  Age: 49 Year
  Sex: Male
  Weight: 101 kg

DRUGS (1)
  1. DIPHENHYDRAMINE [Suspect]
     Route: 048
     Dates: start: 20140415

REACTIONS (4)
  - Pharyngeal oedema [None]
  - Dyspnoea [None]
  - Dysphagia [None]
  - Swelling [None]
